FAERS Safety Report 20710551 (Version 2)
Quarter: 2022Q3

REPORT INFORMATION
  Report Type: Spontaneous
  Country: BR (occurrence: BR)
  Receive Date: 20220414
  Receipt Date: 20220707
  Transmission Date: 20221026
  Serious: Yes (Hospitalization, Other)
  Sender: FDA-Public Use
  Company Number: BR-GLAXOSMITHKLINE-BR2022AMR063132

PATIENT

DRUGS (14)
  1. ALBUTEROL [Suspect]
     Active Substance: ALBUTEROL
     Indication: Asthma
     Dosage: UNK, 400MCG 4/4 HOURS 3 JETS
     Dates: start: 20210726
  2. SERETIDE [Suspect]
     Active Substance: FLUTICASONE PROPIONATE\SALMETEROL XINAFOATE
     Indication: Product used for unknown indication
     Dosage: 1 PUFF(S), TID, 25X125 MCP, 1ST MONTH, 2X PER DAY
  3. BECLOMETHASONE DIPROPIONATE [Suspect]
     Active Substance: BECLOMETHASONE DIPROPIONATE
     Indication: Product used for unknown indication
     Dosage: 1 DF
  4. HYDROXYZINE HYDROCHLORIDE [Suspect]
     Active Substance: HYDROXYZINE HYDROCHLORIDE
     Indication: Product used for unknown indication
     Dosage: 4 ML, BID
     Route: 048
  5. UNSPECIFIED INGREDIENT [Suspect]
     Active Substance: UNSPECIFIED INGREDIENT
     Indication: Product used for unknown indication
     Dosage: 5ML 2X PER DAY ORALLY
     Route: 048
  6. SERINE [Suspect]
     Active Substance: SERINE
     Indication: Product used for unknown indication
     Dosage: 3 ML, BID, 3 TO 5 DAYS
  7. BECLOMETHASONE DIPROPIONATE [Concomitant]
     Active Substance: BECLOMETHASONE DIPROPIONATE
     Indication: Product used for unknown indication
     Dosage: UNK, 150MCG 12/12 HOURS
  8. OXYQUINOLINE\TROLAMINE [Concomitant]
     Active Substance: OXYQUINOLINE\TROLAMINE
     Indication: Product used for unknown indication
     Dosage: 3 DF, TID DROPS IN EACH EAR 3X PER DAY FOR 2 WEEKS
  9. ANNITA [Concomitant]
     Active Substance: NITAZOXANIDE
     Indication: Product used for unknown indication
     Dosage: 2 DF, QD 2X PER DAY ON THE MORNING OF THE PEAK (13K) - 3 CONSECUTIVE DAYS
     Route: 048
  10. MONTELUKAST SODIUM [Concomitant]
     Active Substance: MONTELUKAST SODIUM
     Indication: Product used for unknown indication
     Dosage: 1 DF, QD,4 MG  IN THE MORNING
  11. PREDNISOLONE [Concomitant]
     Active Substance: PREDNISOLONE
     Indication: Product used for unknown indication
     Dosage: 1 DF, QD 27 DROPS 1X PER DAY - 6/7 DAYS
  12. CHLORAMPHENICOL\PREDNISOLONE [Concomitant]
     Active Substance: CHLORAMPHENICOL\PREDNISOLONE
     Indication: Product used for unknown indication
     Dosage: UNK 3MG/ML 4MG/ML) 26 DROPS ORALLY 1X PER DAY 3-5 DAYS
  13. PRELONE [Concomitant]
     Active Substance: PREDNISOLONE
     Indication: Product used for unknown indication
     Dosage: UNK 3MG/ML 5ML IMMEDIATELY, ORALLY, 3 TO 5 DAYS
     Route: 048
  14. ALBUTEROL [Concomitant]
     Active Substance: ALBUTEROL
     Indication: Product used for unknown indication
     Dosage: UNK, 400MCG 4/4 HOURS

REACTIONS (9)
  - Pneumonia [Unknown]
  - Asthma [Unknown]
  - Influenza [Unknown]
  - Cough [Unknown]
  - Hypoxia [Unknown]
  - Lung infiltration [Unknown]
  - Product prescribing error [Unknown]
  - Product use issue [Unknown]
  - Inappropriate schedule of product administration [Unknown]

NARRATIVE: CASE EVENT DATE: 20211126
